FAERS Safety Report 5022392-5 (Version None)
Quarter: 2006Q2

REPORT INFORMATION
  Report Type: 
  Country: None (occurrence: None)
  Receive Date: 20060609
  Receipt Date: 20060515
  Transmission Date: 20061013
  Serious: Yes (Hospitalization)
  Sender: FDA-Public Use
  Company Number: US-AMGEN-STX179525

PATIENT
  Sex: Female
  Weight: 97.6 kg

DRUGS (14)
  1. ENBREL [Suspect]
     Indication: RHEUMATOID ARTHRITIS
     Route: 058
     Dates: start: 19960101, end: 20060401
  2. METHOTREXATE [Concomitant]
     Route: 030
  3. ATENOLOL [Concomitant]
  4. NEXIUM [Concomitant]
  5. FOLIC ACID [Concomitant]
  6. HYDROCHLOROTHIAZIDE [Concomitant]
  7. FORTAZ [Concomitant]
  8. OMEPRAZOLE [Concomitant]
  9. ELAVIL [Concomitant]
  10. SINGULAIR [Concomitant]
  11. AMBIEN [Concomitant]
  12. PULMICORT [Concomitant]
  13. ASPIRIN [Concomitant]
  14. FEOSOL [Concomitant]

REACTIONS (6)
  - CONDITION AGGRAVATED [None]
  - RHEUMATOID ARTHRITIS [None]
  - SKIN DISCOLOURATION [None]
  - SPINAL FUSION SURGERY [None]
  - VENOUS OCCLUSION [None]
  - VENOUS THROMBOSIS LIMB [None]
